FAERS Safety Report 6940839-1 (Version None)
Quarter: 2010Q3

REPORT INFORMATION
  Report Type: 
  Country: None (occurrence: None)
  Receive Date: 20100825
  Receipt Date: 20100816
  Transmission Date: 20110219
  Serious: Yes (Death)
  Sender: FDA-Public Use
  Company Number: GXKR2010DE09168

PATIENT
  Age: 57 Year
  Sex: Female

DRUGS (3)
  1. FLUOROURACIL (NGX) [Suspect]
     Indication: BILE DUCT CANCER
     Route: 065
  2. OXALIPLATIN [Concomitant]
     Indication: BILE DUCT CANCER
  3. LEUCOVORIN CALCIUM [Concomitant]
     Indication: BILE DUCT CANCER

REACTIONS (4)
  - BACK PAIN [None]
  - HAEMOLYSIS [None]
  - SHOCK [None]
  - SOMNOLENCE [None]
